FAERS Safety Report 8200240-X (Version None)
Quarter: 2012Q1

REPORT INFORMATION
  Report Type: 
  Country: None (occurrence: None)
  Receive Date: 20120312
  Receipt Date: 20120309
  Transmission Date: 20120608
  Serious: Yes (Other)
  Sender: FDA-Public Use
  Company Number: US-PFIZER INC-2012040660

PATIENT
  Sex: Female
  Weight: 90.703 kg

DRUGS (3)
  1. CHANTIX [Suspect]
     Indication: SMOKING CESSATION THERAPY
     Dosage: 0.5 MG, UNK
     Route: 048
     Dates: start: 20120215, end: 20120201
  2. CHANTIX [Suspect]
     Dosage: UNK
     Route: 048
     Dates: start: 20120201, end: 20120201
  3. CHANTIX [Suspect]
     Dosage: UNK
     Route: 048
     Dates: start: 20120101

REACTIONS (5)
  - MALAISE [None]
  - PYREXIA [None]
  - NAUSEA [None]
  - BRONCHITIS [None]
  - PNEUMONIA [None]
